FAERS Safety Report 8836233 (Version 1)
Quarter: 2012Q4

REPORT INFORMATION
  Report Type: 
  Country: US (occurrence: US)
  Receive Date: 20121011
  Receipt Date: 20121011
  Transmission Date: 20130627
  Serious: No
  Sender: FDA-Public Use
  Company Number: US-NOVEN-12US004903

PATIENT
  Sex: Male

DRUGS (5)
  1. FENTANYL [Suspect]
     Indication: BACK PAIN
     Dosage: 75 ug/hr, q 3days
     Route: 062
     Dates: start: 2012
  2. FENTANYL [Suspect]
     Indication: NECK PAIN
     Dosage: 50 ug/ hr q 3 days, UNK
  3. INSULIN [Concomitant]
     Indication: TYPE 1 DIABETES MELLITUS
     Route: 058
  4. LYRICA [Concomitant]
     Route: 048
  5. OXYCODONE [Concomitant]
     Indication: BREAKTHROUGH PAIN
     Dosage: 10/325 prn
     Route: 048

REACTIONS (1)
  - Inadequate analgesia [Not Recovered/Not Resolved]
